FAERS Safety Report 7683884-3 (Version None)
Quarter: 2011Q3

REPORT INFORMATION
  Report Type: 
  Country: None (occurrence: None)
  Receive Date: 20110815
  Receipt Date: 20110805
  Transmission Date: 20111222
  Serious: Yes (Hospitalization, Other)
  Sender: FDA-Public Use
  Company Number: US-ASTRAZENECA-2011SE46199

PATIENT
  Age: 35 Year
  Sex: Female

DRUGS (2)
  1. NEXIUM [Suspect]
     Route: 048
  2. PRILOSEC [Suspect]
     Route: 048

REACTIONS (6)
  - DYSPNOEA [None]
  - OESOPHAGEAL DISORDER [None]
  - DRUG INEFFECTIVE [None]
  - OESOPHAGEAL STENOSIS [None]
  - DRUG DOSE OMISSION [None]
  - CHEST PAIN [None]
